FAERS Safety Report 23681725 (Version 1)
Quarter: 2024Q1

REPORT INFORMATION
  Report Type: Spontaneous
  Country: KR (occurrence: KR)
  Receive Date: 20240328
  Receipt Date: 20240328
  Transmission Date: 20240410
  Serious: Yes (Death, Other)
  Sender: FDA-Public Use
  Company Number: KR-ASTELLAS-2024US009081

PATIENT
  Sex: Female

DRUGS (1)
  1. PADCEV [Suspect]
     Active Substance: ENFORTUMAB VEDOTIN-EJFV
     Indication: Transitional cell carcinoma
     Dosage: 60 MG, UNKNOWN FREQ. (30MG 2 VIALS)
     Route: 065
     Dates: start: 20230824, end: 20230824

REACTIONS (1)
  - Death [Fatal]
